FAERS Safety Report 7267178-6 (Version None)
Quarter: 2011Q1

REPORT INFORMATION
  Report Type: 
  Country: None (occurrence: None)
  Receive Date: 20110121
  Receipt Date: 20110107
  Transmission Date: 20110831
  Serious: Yes (Death)
  Sender: FDA-Public Use
  Company Number: 2011000186

PATIENT
  Age: 60 Year
  Sex: Male
  Weight: 58 kg

DRUGS (7)
  1. VOLTAREN [Concomitant]
  2. MAGMITT [Concomitant]
  3. TARCEVA [Suspect]
     Indication: LUNG SQUAMOUS CELL CARCINOMA STAGE UNSPECIFIED
     Dosage: (150 MG,QD),ORAL
     Route: 048
     Dates: start: 20101013, end: 20101026
  4. OMEPRAZOLE [Concomitant]
  5. ASPIRIN [Concomitant]
  6. SENNOSIDE [Concomitant]
  7. DIOVAN [Concomitant]

REACTIONS (3)
  - ACUTE RESPIRATORY DISTRESS SYNDROME [None]
  - LUNG DISORDER [None]
  - BRONCHOPNEUMONIA [None]
